FAERS Safety Report 19155322 (Version 1)
Quarter: 2021Q2

REPORT INFORMATION
  Report Type: Spontaneous
  Country: US (occurrence: US)
  Receive Date: 20210420
  Receipt Date: 20210420
  Transmission Date: 20210717
  Serious: No
  Sender: FDA-Public Use
  Company Number: US-JNJFOC-20210420573

PATIENT
  Sex: Female

DRUGS (1)
  1. SIMPONI ARIA [Suspect]
     Active Substance: GOLIMUMAB
     Indication: PRODUCT USED FOR UNKNOWN INDICATION
     Dosage: DOSAGE:6 X 50 MG
     Route: 042

REACTIONS (5)
  - Gait inability [Unknown]
  - Pain [Unknown]
  - Rash [Unknown]
  - Skin exfoliation [Unknown]
  - Sciatica [Unknown]
